FAERS Safety Report 10230483 (Version 1)
Quarter: 2014Q2

REPORT INFORMATION
  Report Type: Spontaneous
  Country: US (occurrence: US)
  Receive Date: 20140611
  Receipt Date: 20140611
  Transmission Date: 20141212
  Serious: No
  Sender: FDA-Public Use
  Company Number: US-INCYTE CORPORATION-2014IN000933

PATIENT
  Age: 70 Year
  Sex: Female

DRUGS (9)
  1. JAKAFI [Suspect]
     Indication: MYELOFIBROSIS
     Dosage: 5 MG, BID
     Route: 048
     Dates: start: 20130516
  2. CIPROFLOXACIN HCL [Concomitant]
  3. ALBUTEROL SULFATE [Concomitant]
  4. LEVOTHYROXINE SODIUM [Concomitant]
  5. VITAMIN D2 [Concomitant]
  6. DIPHENOXYLATE/ATROPINE [Concomitant]
  7. ACETAMINOPHEN W/HYDROCODONE [Concomitant]
  8. NADOLOL [Concomitant]
  9. DIOVAN [Concomitant]

REACTIONS (1)
  - Influenza [Unknown]
